FAERS Safety Report 12423023 (Version 1)
Quarter: 2016Q2

REPORT INFORMATION
  Report Type: Spontaneous
  Country: US (occurrence: None)
  Receive Date: 20160531
  Receipt Date: 20160531
  Transmission Date: 20160815
  Serious: Yes (Other)
  Sender: FDA-Public Use
  Company Number: None

PATIENT
  Age: 7 Year
  Sex: Female
  Weight: 20.41 kg

DRUGS (1)
  1. OVIDE [Suspect]
     Active Substance: MALATHION
     Indication: LICE INFESTATION
     Dosage: ONCE APPLIED TO A SURFACE, USUALLY THE SKIN
     Dates: start: 20160522

REACTIONS (5)
  - Ear pain [None]
  - Erythema [None]
  - Crying [None]
  - Blister [None]
  - Thermal burn [None]

NARRATIVE: CASE EVENT DATE: 20160522
